FAERS Safety Report 4796251-7 (Version None)
Quarter: 2005Q4

REPORT INFORMATION
  Report Type: 
  Country: None (occurrence: None)
  Receive Date: 20051007
  Receipt Date: 20050927
  Transmission Date: 20060501
  Serious: Yes (Other)
  Sender: FDA-Public Use
  Company Number: 2005118862

PATIENT

DRUGS (4)
  1. XALATAN [Suspect]
     Indication: ILL-DEFINED DISORDER
     Dosage: (1 DROP, QHS  INTERVAL: EVERY DAY), OPHTHALMIC
     Route: 047
     Dates: start: 20030101
  2. COSOPT (HYDROCHLORIDE, TIMOLOL MALEATE) [Concomitant]
  3. ALPHAGAN P [Concomitant]
  4. TRAVATAN [Concomitant]

REACTIONS (3)
  - CORNEAL DISORDER [None]
  - MELANOSIS [None]
  - TREATMENT NONCOMPLIANCE [None]
